FAERS Safety Report 7830582-9 (Version None)
Quarter: 2011Q4

REPORT INFORMATION
  Report Type: 
  Country: None (occurrence: None)
  Receive Date: 20111021
  Receipt Date: 20111017
  Transmission Date: 20120403
  Serious: Yes (Other)
  Sender: FDA-Public Use
  Company Number: CA-PFIZER INC-2011248283

PATIENT
  Age: 65 Year
  Sex: Female

DRUGS (11)
  1. SYMBICORT [Concomitant]
     Dosage: UNK
  2. CORDARONE [Suspect]
     Dosage: 200 MG, UNK
     Dates: start: 20070101
  3. SYNTHROID [Concomitant]
     Dosage: UNK
  4. CALCIUM [Concomitant]
     Dosage: UNK
  5. DIGOXIN [Concomitant]
     Dosage: UNK
  6. XALATAN [Concomitant]
     Dosage: UNK
  7. NEXIUM [Concomitant]
     Dosage: UNK
  8. COLACE [Concomitant]
     Dosage: UNK
  9. EZETIMIBE [Concomitant]
     Dosage: UNK
  10. NORVASC [Concomitant]
     Dosage: UNK
  11. COUMADIN [Concomitant]
     Dosage: UNK

REACTIONS (2)
  - THROAT IRRITATION [None]
  - RASH GENERALISED [None]
